FAERS Safety Report 10399065 (Version 1)
Quarter: 2014Q1

REPORT INFORMATION
  Report Type: Spontaneous
  Country: US (occurrence: None)
  Receive Date: 20130805
  Receipt Date: 20130805
  Transmission Date: 20141002
  Serious: Yes (Other)
  Sender: FDA-Public Use
  Company Number: 2012MA013993

PATIENT
  Sex: Female

DRUGS (1)
  1. KADIAN [Suspect]

REACTIONS (1)
  - Drug abuse [None]
